FAERS Safety Report 21947761 (Version 1)
Quarter: 2023Q1

REPORT INFORMATION
  Report Type: Spontaneous
  Country: US (occurrence: US)
  Receive Date: 20230203
  Receipt Date: 20230203
  Transmission Date: 20230417
  Serious: No
  Sender: FDA-Public Use
  Company Number: US-BoehringerIngelheim-2023-BI-216504

PATIENT
  Age: 61 Year
  Sex: Female

DRUGS (2)
  1. SPIRIVA RESPIMAT [Suspect]
     Active Substance: TIOTROPIUM BROMIDE
     Indication: Emphysema
     Dosage: 2 PUFFS
     Dates: start: 20221216
  2. ALBUTEROL [Concomitant]
     Active Substance: ALBUTEROL
     Indication: Emphysema
     Dosage: FOA: INHALATION?RESCUE

REACTIONS (3)
  - Emphysema [Unknown]
  - Wheezing [Not Recovered/Not Resolved]
  - Dyspnoea [Not Recovered/Not Resolved]

NARRATIVE: CASE EVENT DATE: 20221216
